FAERS Safety Report 5942494-6 (Version None)
Quarter: 2008Q4

REPORT INFORMATION
  Report Type: 
  Country: None (occurrence: None)
  Receive Date: 20081105
  Receipt Date: 20081024
  Transmission Date: 20090506
  Serious: Yes (Other)
  Sender: FDA-Public Use
  Company Number: NO-PFIZER INC-2008090635

PATIENT
  Sex: Female

DRUGS (4)
  1. SOLU-CORTEF [Suspect]
     Dates: start: 20080914, end: 20080928
  2. ENTOCORT EC [Suspect]
  3. HUMIRA [Suspect]
     Indication: CROHN'S DISEASE
     Dates: start: 20080919
  4. PREDNISOLONE [Concomitant]

REACTIONS (2)
  - INTRASPINAL ABSCESS [None]
  - SEPSIS [None]
